FAERS Safety Report 5188536-X (Version None)
Quarter: 2006Q4

REPORT INFORMATION
  Report Type: 
  Country: None (occurrence: None)
  Receive Date: 20061214
  Receipt Date: 20061207
  Transmission Date: 20070319
  Serious: No
  Sender: FDA-Public Use
  Company Number: 231290

PATIENT
  Age: 36 Year
  Sex: Female
  Weight: 87.1 kg

DRUGS (10)
  1. XOLAIR [Suspect]
     Indication: ASTHMA
     Dosage: 150 MG, 1/MONTH, SUBCUTANEOUS
     Route: 058
     Dates: start: 20060426
  2. STEROIDS NOS (STEROID NOS) [Concomitant]
  3. PREDNISONE TAB [Concomitant]
  4. BENADRYL [Concomitant]
  5. ADVAIR DISKUS 100/50 [Concomitant]
  6. SINGULAIR [Concomitant]
  7. TOPAMAX [Concomitant]
  8. ALBUTEROL (ALBUTEROL/ALBUTEROL SULFATE) [Concomitant]
  9. AVANDIA [Concomitant]
  10. SYNTHROID [Concomitant]

REACTIONS (1)
  - DRUG HYPERSENSITIVITY [None]
